FAERS Safety Report 5421466-4 (Version None)
Quarter: 2007Q3

REPORT INFORMATION
  Report Type: 
  Country: None (occurrence: None)
  Receive Date: 20070725
  Receipt Date: 20060816
  Transmission Date: 20080115
  Serious: Yes (Other)
  Sender: FDA-Public Use
  Company Number: USA-2006-0024965

PATIENT
  Age: 45 Year
  Sex: Male

DRUGS (1)
  1. MORPHINE SULFATE [Suspect]
     Indication: FOOT FRACTURE
     Dosage: PARENTERAL
     Route: 051

REACTIONS (1)
  - DRUG DEPENDENCE [None]
